FAERS Safety Report 8180585-2 (Version None)
Quarter: 2012Q1

REPORT INFORMATION
  Report Type: 
  Country: None (occurrence: None)
  Receive Date: 20120221
  Receipt Date: 20120209
  Transmission Date: 20120608
  Serious: Yes (Hospitalization, Other)
  Sender: FDA-Public Use
  Company Number: 2011029926

PATIENT
  Age: 46 Year
  Sex: Female
  Weight: 120.2032 kg

DRUGS (46)
  1. SOMA [Concomitant]
  2. TIGAN [Concomitant]
  3. PROMETHAZINE [Concomitant]
  4. ACETAMINOPHEN [Concomitant]
  5. DULERA (FORMOTEROL) [Concomitant]
  6. FENOFIBRATE [Concomitant]
  7. TUSSONEX (TUSSIONEX PENNKINETIC) [Concomitant]
  8. CYTOTEC [Concomitant]
  9. NEXIUM [Concomitant]
  10. MS CONTIN [Concomitant]
  11. CARAFATE [Concomitant]
  12. FLONASE [Concomitant]
  13. MIRAPEX [Concomitant]
  14. LISINOPRIL [Concomitant]
  15. XYZAL [Concomitant]
  16. ANTIVERT [Concomitant]
  17. NORVASC [Concomitant]
  18. ADVAIR DISKUS 100/50 [Concomitant]
  19. PERCOCET [Concomitant]
  20. AMBIEN [Concomitant]
  21. FLONASE [Concomitant]
  22. TRUSOPT [Concomitant]
  23. LEVEMIR [Concomitant]
  24. CRESTOR [Concomitant]
  25. HUMULIN (INSULIN HUMAN) [Concomitant]
  26. ASTEPRO [Concomitant]
  27. LASIX [Concomitant]
  28. HIZENTRA [Suspect]
  29. ZETIA [Concomitant]
  30. CLONIDINE [Concomitant]
  31. OXYGEN (OXYGEN) [Concomitant]
  32. COREG [Concomitant]
  33. ALLEGRA [Concomitant]
  34. TIROSINT (LEVOTHYROXINE) [Concomitant]
  35. HIZENTRA [Suspect]
     Indication: HYPOGAMMAGLOBULINAEMIA
     Dosage: SEE IMAGE
     Route: 058
     Dates: start: 20110103
  36. HIZENTRA [Suspect]
     Indication: HYPOGAMMAGLOBULINAEMIA
     Dosage: SEE IMAGE
     Route: 058
     Dates: start: 20110921
  37. LIBRAX [Concomitant]
  38. ENOXAPARIN SODIUM [Concomitant]
  39. SYNTHROID [Concomitant]
  40. OXYCODONE HCL [Concomitant]
  41. DOMPERIDONE (DOMPERIDONE) [Concomitant]
  42. PROVENTIL [Concomitant]
  43. CYMBALTA [Concomitant]
  44. ZANAFLEX [Concomitant]
  45. ATIVAN [Concomitant]
  46. XALATAN [Concomitant]

REACTIONS (4)
  - RENAL FAILURE [None]
  - THROMBOSIS [None]
  - WEIGHT INCREASED [None]
  - UPPER RESPIRATORY TRACT INFECTION [None]
